FAERS Safety Report 4674058-9 (Version None)
Quarter: 2005Q2

REPORT INFORMATION
  Report Type: 
  Country: None (occurrence: None)
  Receive Date: 20050525
  Receipt Date: 20050511
  Transmission Date: 20051028
  Serious: Yes (Death, Life-Threatening)
  Sender: FDA-Public Use
  Company Number: DE_050515911

PATIENT
  Sex: Male
  Weight: 94 kg

DRUGS (1)
  1. ALIMTA [Suspect]
     Indication: PLEURAL MESOTHELIOMA
     Dosage: 1000 MG
     Dates: start: 20050216

REACTIONS (6)
  - BLOOD CREATINE INCREASED [None]
  - HEPATIC ENZYME INCREASED [None]
  - NEOPLASM PROGRESSION [None]
  - NEUTROPENIC SEPSIS [None]
  - PANCYTOPENIA [None]
  - TUMOUR LYSIS SYNDROME [None]
